FAERS Safety Report 20711347 (Version 1)
Quarter: 2022Q2

REPORT INFORMATION
  Report Type: Spontaneous
  Country: US (occurrence: US)
  Receive Date: 20220414
  Receipt Date: 20220414
  Transmission Date: 20220720
  Serious: No
  Sender: FDA-Public Use
  Company Number: US-PFIZER INC-202100985789

PATIENT
  Age: 55 Year
  Sex: Male
  Weight: 102.06 kg

DRUGS (1)
  1. CHANTIX [Suspect]
     Active Substance: VARENICLINE TARTRATE
     Indication: Smoking cessation therapy
     Dosage: 1 MG, 2X/DAY
     Route: 048
     Dates: start: 20191028

REACTIONS (5)
  - Nightmare [Recovering/Resolving]
  - Enuresis [Recovering/Resolving]
  - Headache [Recovering/Resolving]
  - Feeling abnormal [Recovering/Resolving]
  - Recalled product administered [Unknown]

NARRATIVE: CASE EVENT DATE: 20190101
